FAERS Safety Report 5744071-9 (Version None)
Quarter: 2008Q2

REPORT INFORMATION
  Report Type: 
  Country: None (occurrence: None)
  Receive Date: 20080516
  Receipt Date: 20080516
  Transmission Date: 20081010
  Serious: Yes (Hospitalization)
  Sender: FDA-Public Use
  Company Number: None

PATIENT
  Age: 37 Year
  Sex: Female

DRUGS (1)
  1. NAPROXEN [Suspect]
     Dosage: 750 MG PO QHS
     Route: 048
     Dates: end: 20080307

REACTIONS (3)
  - ABDOMINAL DISCOMFORT [None]
  - HAEMATOCHEZIA [None]
  - MUSCLE SPASMS [None]
